FAERS Safety Report 11379745 (Version 1)
Quarter: 2015Q3

REPORT INFORMATION
  Report Type: Spontaneous
  Country: US (occurrence: None)
  Receive Date: 20150813
  Receipt Date: 20150813
  Transmission Date: 20151125
  Serious: No
  Sender: FDA-Public Use
  Company Number: None

PATIENT
  Age: 9 Year
  Sex: Male
  Weight: 81.65 kg

DRUGS (1)
  1. RITALIN [Suspect]
     Active Substance: METHYLPHENIDATE HYDROCHLORIDE
     Indication: ATTENTION DEFICIT/HYPERACTIVITY DISORDER
     Dosage: 1 PILL
     Route: 048
     Dates: start: 19850101, end: 19890201

REACTIONS (5)
  - Gynaecomastia [None]
  - Metabolic disorder [None]
  - Weight increased [None]
  - Hypermetabolism [None]
  - Increased appetite [None]

NARRATIVE: CASE EVENT DATE: 19890201
